FAERS Safety Report 5767591-X (Version None)
Quarter: 2008Q2

REPORT INFORMATION
  Report Type: 
  Country: None (occurrence: None)
  Receive Date: 20080612
  Receipt Date: 20080603
  Transmission Date: 20081010
  Serious: Yes (Hospitalization, Other)
  Sender: FDA-Public Use
  Company Number: US-PFIZER INC-2008040602

PATIENT
  Sex: Female
  Weight: 98 kg

DRUGS (16)
  1. CHANTIX [Suspect]
     Indication: SMOKING CESSATION THERAPY
  2. MIRAPEX [Concomitant]
     Dosage: DAILY DOSE:5MG
  3. MIRALAX [Concomitant]
  4. LASIX [Concomitant]
  5. SEROQUEL [Concomitant]
  6. TRAZODONE HCL [Concomitant]
  7. ADVAIR DISKUS 100/50 [Concomitant]
  8. XOPENEX [Concomitant]
  9. ALBUTEROL [Concomitant]
  10. NEURONTIN [Concomitant]
  11. PREMARIN [Concomitant]
  12. GUAIFENESIN [Concomitant]
  13. IPRATROPIUM BROMIDE [Concomitant]
  14. HYDROXYZINE [Concomitant]
  15. ALL OTHER THERAPEUTIC PRODUCTS [Concomitant]
  16. CELEBREX [Concomitant]

REACTIONS (4)
  - AGITATION [None]
  - DEPRESSION [None]
  - SMOKER [None]
  - SUICIDAL IDEATION [None]
